FAERS Safety Report 25616477 (Version 1)
Quarter: 2025Q3

REPORT INFORMATION
  Report Type: Spontaneous
  Country: US (occurrence: US)
  Receive Date: 20250729
  Receipt Date: 20250729
  Transmission Date: 20251020
  Serious: Yes (Death, Hospitalization)
  Sender: MYLAN
  Company Number: US-MYLANLABS-2025M1063340

PATIENT
  Sex: Female

DRUGS (22)
  1. OXALIPLATIN [Suspect]
     Active Substance: OXALIPLATIN
     Indication: Ductal adenocarcinoma of pancreas
  2. OXALIPLATIN [Suspect]
     Active Substance: OXALIPLATIN
  3. LEUCOVORIN [Suspect]
     Active Substance: LEUCOVORIN\LEUCOVORIN CALCIUM
     Indication: Ductal adenocarcinoma of pancreas
  4. LEUCOVORIN [Suspect]
     Active Substance: LEUCOVORIN\LEUCOVORIN CALCIUM
  5. PEGFILGRASTIM [Suspect]
     Active Substance: PEGFILGRASTIM
     Indication: Ductal adenocarcinoma of pancreas
  6. PEGFILGRASTIM [Suspect]
     Active Substance: PEGFILGRASTIM
  7. FLUOROURACIL [Suspect]
     Active Substance: FLUOROURACIL
     Indication: Ductal adenocarcinoma of pancreas
  8. FLUOROURACIL [Suspect]
     Active Substance: FLUOROURACIL
  9. IRINOTECAN [Suspect]
     Active Substance: IRINOTECAN
     Indication: Ductal adenocarcinoma of pancreas
  10. IRINOTECAN [Suspect]
     Active Substance: IRINOTECAN
  11. Immunoglobulin [Concomitant]
     Indication: Pulmonary toxicity
  12. Immunoglobulin [Concomitant]
     Indication: Respiratory failure
  13. Immunoglobulin [Concomitant]
     Indication: Hypersensitivity pneumonitis
  14. Immunoglobulin [Concomitant]
     Indication: Condition aggravated
  15. Immunoglobulin [Concomitant]
     Indication: Respiratory distress
  16. Immunoglobulin [Concomitant]
     Indication: Interstitial lung disease
  17. RITUXIMAB [Concomitant]
     Active Substance: RITUXIMAB
     Indication: Pulmonary toxicity
  18. RITUXIMAB [Concomitant]
     Active Substance: RITUXIMAB
     Indication: Respiratory failure
  19. RITUXIMAB [Concomitant]
     Active Substance: RITUXIMAB
     Indication: Hypersensitivity pneumonitis
  20. RITUXIMAB [Concomitant]
     Active Substance: RITUXIMAB
     Indication: Condition aggravated
  21. RITUXIMAB [Concomitant]
     Active Substance: RITUXIMAB
     Indication: Respiratory distress
  22. RITUXIMAB [Concomitant]
     Active Substance: RITUXIMAB
     Indication: Interstitial lung disease

REACTIONS (9)
  - Pulmonary toxicity [Fatal]
  - Respiratory failure [Fatal]
  - Respiratory distress [Fatal]
  - Interstitial lung disease [Fatal]
  - Condition aggravated [Fatal]
  - Hypersensitivity pneumonitis [Fatal]
  - Type IV hypersensitivity reaction [Unknown]
  - Renal failure [Fatal]
  - Multiple organ dysfunction syndrome [Fatal]
